FAERS Safety Report 8462939-X (Version None)
Quarter: 2012Q2

REPORT INFORMATION
  Report Type: 
  Country: None (occurrence: None)
  Receive Date: 20120625
  Receipt Date: 20120615
  Transmission Date: 20120825
  Serious: Yes (Other)
  Sender: FDA-Public Use
  Company Number: BR-ASTRAZENECA-2012SE40213

PATIENT
  Age: 63 Year
  Sex: Female
  Weight: 70 kg

DRUGS (6)
  1. NEXIUM [Suspect]
     Indication: HIATUS HERNIA
     Route: 048
     Dates: start: 20090101, end: 20120401
  2. NEXIUM [Suspect]
     Indication: DYSPEPSIA
     Route: 048
     Dates: start: 20090101, end: 20120401
  3. NEXIUM [Suspect]
     Route: 048
  4. CALCIUM [Concomitant]
     Indication: OSTEOPENIA
     Route: 048
  5. NEXIUM [Suspect]
     Route: 048
  6. ATENOLOL [Suspect]
     Route: 048
     Dates: start: 20070101

REACTIONS (4)
  - CONDITION AGGRAVATED [None]
  - HIATUS HERNIA [None]
  - DYSPEPSIA [None]
  - DRUG INEFFECTIVE [None]
